FAERS Safety Report 15387676 (Version 5)
Quarter: 2021Q1

REPORT INFORMATION
  Report Type: Spontaneous
  Country: US (occurrence: US)
  Receive Date: 20180914
  Receipt Date: 20210211
  Transmission Date: 20210419
  Serious: Yes (Hospitalization, Other)
  Sender: FDA-Public Use
  Company Number: US-VIFOR (INTERNATIONAL) INC.-VIT-2018-08586

PATIENT
  Age: 92 Year
  Sex: Female
  Weight: 52.66 kg

DRUGS (14)
  1. VELTASSA [Suspect]
     Active Substance: PATIROMER
     Indication: HYPERKALAEMIA
     Route: 048
     Dates: start: 20180119
  2. VELTASSA [Suspect]
     Active Substance: PATIROMER
     Route: 048
     Dates: start: 20170707
  3. ASPIRIN. [Concomitant]
     Active Substance: ASPIRIN
  4. OLMESARTAN MEDOXOMIL. [Concomitant]
     Active Substance: OLMESARTAN MEDOXOMIL
  5. CALCIUM [Concomitant]
     Active Substance: CALCIUM
  6. LISINOPRIL. [Concomitant]
     Active Substance: LISINOPRIL
  7. ISOSORBIDE MONONITRATE ER [Concomitant]
     Active Substance: ISOSORBIDE MONONITRATE
  8. CARVEDILOL. [Concomitant]
     Active Substance: CARVEDILOL
  9. ZIOPTAN [Concomitant]
     Active Substance: TAFLUPROST
  10. FUROSEMIDE. [Concomitant]
     Active Substance: FUROSEMIDE
  11. VITAMIN D3 [Concomitant]
     Active Substance: CHOLECALCIFEROL
  12. REPATHA [Concomitant]
     Active Substance: EVOLOCUMAB
  13. MAGNESIUM OXIDE. [Concomitant]
     Active Substance: MAGNESIUM OXIDE
  14. COENZYME Q10 [Concomitant]
     Active Substance: DIETARY SUPPLEMENT\UBIDECARENONE

REACTIONS (7)
  - Off label use [Unknown]
  - Back pain [Recovering/Resolving]
  - Product dose omission in error [Unknown]
  - Pancreatitis [Recovering/Resolving]
  - Constipation [Recovering/Resolving]
  - Cholelithiasis [Recovered/Resolved]
  - Nausea [Recovering/Resolving]

NARRATIVE: CASE EVENT DATE: 2017
